FAERS Safety Report 7139440-9 (Version None)
Quarter: 2010Q4

REPORT INFORMATION
  Report Type: 
  Country: None (occurrence: None)
  Receive Date: 20101206
  Receipt Date: 20101130
  Transmission Date: 20110411
  Serious: Yes (Hospitalization)
  Sender: FDA-Public Use
  Company Number: FR-PFIZER INC-2010160136

PATIENT
  Age: 87 Year
  Sex: Male

DRUGS (3)
  1. TAHOR [Suspect]
     Dosage: 10 MG, 1X/DAY
     Dates: end: 20100201
  2. TAHOR [Suspect]
     Dosage: 80 MG, 1X/DAY
     Route: 048
     Dates: start: 20100201, end: 20100814
  3. ALLOPURINOL [Suspect]
     Dosage: 200 MG, 1X/DAY
     Route: 048
     Dates: end: 20100814

REACTIONS (1)
  - THROMBOCYTOPENIA [None]
